FAERS Safety Report 7990437-6 (Version None)
Quarter: 2011Q4

REPORT INFORMATION
  Report Type: 
  Country: None (occurrence: None)
  Receive Date: 20111219
  Receipt Date: 20110422
  Transmission Date: 20120403
  Serious: No
  Sender: FDA-Public Use
  Company Number: US-ASTRAZENECA-2011SE23382

PATIENT
  Age: 77 Year
  Sex: Female
  Weight: 83.5 kg

DRUGS (3)
  1. ASPIRIN [Concomitant]
  2. NAPROXEN (ALEVE) [Concomitant]
  3. CRESTOR [Suspect]
     Indication: HYPERCHOLESTEROLAEMIA
     Route: 048
     Dates: start: 20100901

REACTIONS (4)
  - DRUG INEFFECTIVE [None]
  - FORMICATION [None]
  - BLOOD CHOLESTEROL INCREASED [None]
  - LIMB DISCOMFORT [None]
